FAERS Safety Report 6736864-6 (Version None)
Quarter: 2010Q2

REPORT INFORMATION
  Report Type: 
  Country: None (occurrence: None)
  Receive Date: 20100520
  Receipt Date: 20100520
  Transmission Date: 20101027
  Serious: Yes (Hospitalization)
  Sender: FDA-Public Use
  Company Number: None

PATIENT
  Sex: Male
  Weight: 67.1 kg

DRUGS (2)
  1. ETOPOSIDE [Suspect]
     Dosage: 400 MG
  2. IFOSFAMIDE [Suspect]
     Dosage: 11000 MG

REACTIONS (18)
  - APNOEA [None]
  - BLOOD PH DECREASED [None]
  - BONE SARCOMA [None]
  - CARDIAC ARREST [None]
  - DISORIENTATION [None]
  - ELECTROMECHANICAL DISSOCIATION [None]
  - ENCEPHALOPATHY [None]
  - HYPERHIDROSIS [None]
  - HYPERKALAEMIA [None]
  - HYPERTENSION [None]
  - HYPOVENTILATION [None]
  - MENTAL STATUS CHANGES [None]
  - NEUROTOXICITY [None]
  - PYREXIA [None]
  - TACHYCARDIA [None]
  - TACHYPNOEA [None]
  - URINARY INCONTINENCE [None]
  - VENTRICULAR TACHYCARDIA [None]
